FAERS Safety Report 7795127-0 (Version None)
Quarter: 2011Q3

REPORT INFORMATION
  Report Type: 
  Country: None (occurrence: None)
  Receive Date: 20110930
  Receipt Date: 20110916
  Transmission Date: 20111222
  Serious: Yes (Life-Threatening, Hospitalization, Disabling)
  Sender: FDA-Public Use
  Company Number: FK201102002

PATIENT
  Age: 50 Year
  Sex: Female
  Weight: 77 kg

DRUGS (5)
  1. OXYCONTIN [Concomitant]
  2. CARBOPLATIN [Suspect]
     Indication: OVARIAN CANCER
     Dosage: INTRAVENOUS
     Route: 042
     Dates: start: 20100407, end: 20100407
  3. MAGNESIUM (MAGNESIUM) [Concomitant]
  4. PACLITAXEL [Suspect]
     Indication: OVARIAN CANCER
     Dosage: INTRAVENOUS
     Route: 042
     Dates: start: 20101223, end: 20101223
  5. INNOHEP (HEPARIN-F-REACTION, SODIUM SALT) [Concomitant]

REACTIONS (2)
  - ANAPHYLACTIC REACTION [None]
  - CARDIAC ARREST [None]
